FAERS Safety Report 23523185 (Version 1)
Quarter: 2024Q1

REPORT INFORMATION
  Report Type: Spontaneous
  Country: GB (occurrence: None)
  Receive Date: 20240214
  Receipt Date: 20240214
  Transmission Date: 20240410
  Serious: Yes (Life-Threatening, Disabling, Other)
  Sender: FDA-Public Use
  Company Number: 2024A038135

PATIENT
  Age: 57 Year
  Sex: Male
  Weight: 68 kg

DRUGS (4)
  1. QUETIAPINE [Suspect]
     Active Substance: QUETIAPINE
     Indication: Depression
     Dosage: ONCE AT NIGHT
     Route: 048
     Dates: start: 20230414
  2. QUETIAPINE [Suspect]
     Active Substance: QUETIAPINE
     Indication: Head injury
     Dosage: ONCE AT NIGHT
     Route: 048
     Dates: start: 20230414
  3. QUETIAPINE [Suspect]
     Active Substance: QUETIAPINE
     Indication: Intrusive thoughts
     Dosage: ONCE AT NIGHT
     Route: 048
     Dates: start: 20230414
  4. DIAZEPAM [Concomitant]
     Active Substance: DIAZEPAM
     Indication: Product used for unknown indication
     Dosage: OCCASIONALLY

REACTIONS (6)
  - Arrhythmia [Not Recovered/Not Resolved]
  - Palpitations [Not Recovered/Not Resolved]
  - Syncope [Not Recovered/Not Resolved]
  - Bradycardia [Not Recovered/Not Resolved]
  - Hypotension [Not Recovered/Not Resolved]
  - Malaise [Unknown]
